FAERS Safety Report 16997294 (Version 1)
Quarter: 2019Q4

REPORT INFORMATION
  Report Type: Spontaneous
  Country: US (occurrence: US)
  Receive Date: 20191030
  Receipt Date: 20191030
  Transmission Date: 20200122
  Serious: Yes (Death)
  Sender: FDA-Public Use
  Company Number: None

PATIENT
  Age: 81 Year
  Sex: Female

DRUGS (2)
  1. MYCOPHENOLATE 500 MG [Suspect]
     Active Substance: MYCOPHENOLATE MOFETIL
     Indication: RENAL TRANSPLANT
     Route: 048
     Dates: start: 20120907
  2. TACROLIMUS 1 MG [Suspect]
     Active Substance: TACROLIMUS
     Route: 048
     Dates: start: 20121211

REACTIONS (1)
  - Death [None]

NARRATIVE: CASE EVENT DATE: 20191030
